FAERS Safety Report 7929544-2 (Version None)
Quarter: 2011Q4

REPORT INFORMATION
  Report Type: 
  Country: None (occurrence: None)
  Receive Date: 20111121
  Receipt Date: 20111112
  Transmission Date: 20120403
  Serious: Yes (Other)
  Sender: FDA-Public Use
  Company Number: PT-JNJFOC-20111105641

PATIENT
  Sex: Male

DRUGS (4)
  1. PREZISTA [Suspect]
     Route: 048
     Dates: start: 20110501
  2. TRUVADA [Concomitant]
     Indication: HIV INFECTION
     Route: 048
  3. RITONAVIR [Concomitant]
     Indication: HIV INFECTION
     Route: 048
  4. PREZISTA [Suspect]
     Indication: HIV INFECTION
     Route: 048
     Dates: start: 20111112, end: 20111112

REACTIONS (6)
  - IRRITABILITY [None]
  - DIARRHOEA [None]
  - SUICIDE ATTEMPT [None]
  - NAUSEA [None]
  - ASTHENIA [None]
  - VOMITING [None]
